FAERS Safety Report 8912263 (Version 3)
Quarter: 2013Q1

REPORT INFORMATION
  Report Type: Spontaneous
  Country: US (occurrence: US)
  Receive Date: 20121116
  Receipt Date: 20130125
  Transmission Date: 20140127
  Serious: Yes (Other)
  Sender: FDA-Public Use
  Company Number: US-BAYER-2012-117978

PATIENT
  Age: 25 Year
  Sex: Female
  Weight: 63.49 kg

DRUGS (2)
  1. MIRENA [Suspect]
     Indication: CONTRACEPTION
     Dosage: 20 MCG/24HR, CONT
     Route: 015
     Dates: start: 20120910, end: 20121107
  2. MIRENA [Suspect]
     Indication: GENITAL HAEMORRHAGE

REACTIONS (7)
  - Device dislocation [None]
  - Post procedural haemorrhage [Recovering/Resolving]
  - Procedural pain [Recovering/Resolving]
  - Abdominal pain [Recovering/Resolving]
  - Pain [Recovering/Resolving]
  - Menorrhagia [None]
  - Mood swings [Recovering/Resolving]
